FAERS Safety Report 14419990 (Version 3)
Quarter: 2018Q1

REPORT INFORMATION
  Report Type: Spontaneous
  Country: DE (occurrence: DE)
  Receive Date: 20180122
  Receipt Date: 20180326
  Transmission Date: 20180509
  Serious: Yes (Life-Threatening, Other)
  Sender: FDA-Public Use
  Company Number: DE-PFIZER INC-2018027212

PATIENT
  Age: 32 Year
  Sex: Female
  Weight: 92 kg

DRUGS (11)
  1. DISOPRIVAN [Concomitant]
     Active Substance: PROPOFOL
     Indication: CHOLECYSTECTOMY
     Dosage: 200 MG, UNK
     Dates: start: 20160324, end: 20160324
  2. SUFENTANIL [Concomitant]
     Active Substance: SUFENTANIL
     Indication: GENERAL ANAESTHESIA
  3. FORTECORTIN [Concomitant]
     Active Substance: DEXAMETHASONE
     Indication: ANTIEMETIC SUPPORTIVE CARE
     Dosage: 8 MG, UNK
     Dates: start: 20160324, end: 20160324
  4. SUFENTANIL [Concomitant]
     Active Substance: SUFENTANIL
     Indication: CHOLECYSTECTOMY
     Dosage: 30 MG, UNK
     Dates: start: 20160324, end: 20160324
  5. ATRACURIUM [Concomitant]
     Active Substance: ATRACURIUM
     Indication: CHOLECYSTECTOMY
     Dosage: 25 MG, UNK
     Dates: start: 20160324, end: 20160324
  6. DESFLURANE. [Concomitant]
     Active Substance: DESFLURANE
     Indication: CHOLECYSTECTOMY
     Dosage: UNK
     Dates: start: 20160324, end: 20160324
  7. DISOPRIVAN [Concomitant]
     Active Substance: PROPOFOL
     Indication: GENERAL ANAESTHESIA
  8. DESFLURANE. [Concomitant]
     Active Substance: DESFLURANE
     Indication: GENERAL ANAESTHESIA
  9. NOVALGIN (METAMIZOLE SODIUM) [Concomitant]
     Active Substance: METAMIZOLE SODIUM
     Indication: PAIN MANAGEMENT
  10. UNACID (AMPICILLIN SODIUM, SULBACTAM SODIUM) [Suspect]
     Active Substance: AMPICILLIN SODIUM\SULBACTAM SODIUM
     Indication: ANTIBIOTIC PROPHYLAXIS
     Dosage: 3 G, AS INFUSION
     Route: 042
     Dates: start: 20160324, end: 20160324
  11. ATRACURIUM [Concomitant]
     Active Substance: ATRACURIUM
     Indication: GENERAL ANAESTHESIA

REACTIONS (2)
  - Contraindicated product administered [Unknown]
  - Hepatic failure [Recovered/Resolved]

NARRATIVE: CASE EVENT DATE: 20160324
